FAERS Safety Report 7766022-8 (Version None)
Quarter: 2011Q3

REPORT INFORMATION
  Report Type: 
  Country: None (occurrence: None)
  Receive Date: 20110921
  Receipt Date: 20110913
  Transmission Date: 20111222
  Serious: Yes (Hospitalization)
  Sender: FDA-Public Use
  Company Number: US-BAYER-2010-006248

PATIENT
  Age: 33 Year
  Sex: Female

DRUGS (18)
  1. YASMIN [Suspect]
     Dosage: UNK
     Route: 048
     Dates: start: 20070501, end: 20071101
  2. NSAID'S [Concomitant]
     Indication: CHEST PAIN
  3. IBUPROFEN [Concomitant]
     Dosage: UNK UNK, PRN
  4. ANTIBIOTICS [Concomitant]
     Indication: ACNE
     Dosage: UNK
     Dates: start: 20060101
  5. DICLOFENAC SODIUM [Concomitant]
     Dosage: 75 MG, UNK
     Dates: start: 20070926
  6. ASCORBIC ACID [Concomitant]
  7. ERITROMICINA [Concomitant]
     Dosage: 2%
     Dates: start: 20070918
  8. NAPROXEN [Concomitant]
     Dosage: 500 MG, UNK
     Dates: start: 20071029
  9. VICODIN [Concomitant]
     Indication: PNEUMONIA
  10. BREVOXYL-4 [Concomitant]
     Dosage: UNK
     Dates: start: 20070918
  11. AZITHROMYCIN [Concomitant]
     Dosage: 250 MG, UNK
     Dates: start: 20070929
  12. TRAMADOL HCL CF [Concomitant]
     Dosage: 50 MG, UNK
     Dates: start: 20071003
  13. NSAID'S [Concomitant]
     Indication: MUSCULOSKELETAL CHEST PAIN
  14. ZITHROMAX [Concomitant]
     Indication: PNEUMONIA
  15. ALBUTEROL [Concomitant]
     Dosage: 90 MCG/24HR, UNK
     Dates: start: 20071009
  16. BENZOYL PEROXIDE [Concomitant]
     Indication: ACNE
     Dosage: UNK
     Dates: start: 20060101
  17. HYDROCODONE BITARTRATE AND ACETAMINOPHEN [Concomitant]
     Dosage: 5-500
     Dates: start: 20070929
  18. CIPROFLOXACIN HCL [Concomitant]
     Dosage: 250 MG, UNK
     Dates: start: 20071022

REACTIONS (2)
  - PAIN [None]
  - PULMONARY EMBOLISM [None]
